FAERS Safety Report 13440921 (Version 1)
Quarter: 2017Q2

REPORT INFORMATION
  Report Type: Report from Study
  Country: None (occurrence: NL)
  Receive Date: 20170413
  Receipt Date: 20170413
  Transmission Date: 20170830
  Serious: Yes (Death, Hospitalization)
  Sender: FDA-Public Use
  Company Number: NL-ABBVIE-17P-114-1939891-00

PATIENT
  Age: 67 Year
  Sex: Male

DRUGS (1)
  1. DUODOPA [Suspect]
     Active Substance: CARBIDOPA\LEVODOPA
     Indication: PARKINSON^S DISEASE
     Dosage: MD 3, CD 5, ED2.5, ND 3.5
     Route: 050
     Dates: start: 20080317

REACTIONS (6)
  - Death [Fatal]
  - Lung disorder [Unknown]
  - Dysphagia [Unknown]
  - Respiratory tract infection [Unknown]
  - Pyrexia [Unknown]
  - Underdose [Unknown]

NARRATIVE: CASE EVENT DATE: 201703
